FAERS Safety Report 7897513-7 (Version None)
Quarter: 2011Q4

REPORT INFORMATION
  Report Type: 
  Country: None (occurrence: None)
  Receive Date: 20111107
  Receipt Date: 20111024
  Transmission Date: 20120403
  Serious: Yes (Hospitalization, Other)
  Sender: FDA-Public Use
  Company Number: DE-PFIZER INC-2011268208

PATIENT
  Age: 46 Year
  Sex: Female

DRUGS (10)
  1. IBUPROFEN [Suspect]
     Dosage: UNK
     Dates: start: 20110101
  2. ACETYLSALICYLIC ACID/PARACETAMOL [Concomitant]
     Dosage: UNK
     Dates: start: 20100805
  3. IBUPROFEN [Suspect]
     Indication: INFLUENZA LIKE ILLNESS
     Dosage: UNK
     Dates: start: 20100822, end: 20100825
  4. PEGINTERFERON ALFA-2A [Suspect]
     Indication: HEPATITIS C
     Dosage: UNK
     Dates: start: 20100805, end: 20110630
  5. YASMIN [Concomitant]
  6. RIBAVIRIN [Suspect]
     Indication: HEPATITIS C
     Dosage: 1000 MG, UNK
     Route: 065
     Dates: start: 20100805
  7. METOCLOPRAMIDE HYDROCHLORIDE [Concomitant]
     Dosage: UNK
     Dates: start: 20100812
  8. XYLOCAINE [Concomitant]
     Dosage: UNK
     Dates: start: 20101013
  9. INVESTIGATIONAL DRUG [Suspect]
     Indication: HEPATITIS C
     Dosage: UNK
     Dates: start: 20100805, end: 20111030
  10. IBUPROFEN [Suspect]
     Indication: INFLUENZA LIKE ILLNESS
     Dosage: 800 MG, UNK
     Route: 065
     Dates: start: 20100801, end: 20110801

REACTIONS (1)
  - HEPATIC FAILURE [None]
